FAERS Safety Report 24089753 (Version 1)
Quarter: 2024Q3

REPORT INFORMATION
  Report Type: Spontaneous
  Country: US (occurrence: US)
  Receive Date: 20240715
  Receipt Date: 20240715
  Transmission Date: 20241017
  Serious: Yes (Death, Hospitalization)
  Sender: Steriscience PTE
  Company Number: IN-Wipro-3954594-378088

PATIENT
  Age: 60 Day

DRUGS (12)
  1. MIDAZOLAM [Suspect]
     Active Substance: MIDAZOLAM
     Indication: Status epilepticus
     Dosage: 0.1 MILLIGRAM/KILOGRAM, QH
     Route: 042
  2. MIDAZOLAM [Suspect]
     Active Substance: MIDAZOLAM
     Dosage: 1 MILLIGRAM/KILOGRAM, QH
     Route: 042
  3. LORAZEPAM [Suspect]
     Active Substance: LORAZEPAM
     Indication: Status epilepticus
     Dosage: 0.1 MILLIGRAM/KILOGRAM
     Route: 042
  4. PHENOBARBITAL [Suspect]
     Active Substance: PHENOBARBITAL
     Indication: Status epilepticus
     Dosage: 20 MILLIGRAM/KILOGRAM
     Route: 042
  5. FOSPHENYTOIN [Suspect]
     Active Substance: FOSPHENYTOIN
     Indication: Status epilepticus
     Dosage: 20-MG PHENYTOIN EQUIVALENTS (PES)/KG
     Route: 042
  6. FOSPHENYTOIN [Suspect]
     Active Substance: FOSPHENYTOIN
     Dosage: 10-MG PES/KG
     Route: 042
  7. PENTOBARBITAL [Suspect]
     Active Substance: PENTOBARBITAL
     Indication: Status epilepticus
     Dosage: 0.5 MILLIGRAM/KILOGRAM, QH
     Route: 042
  8. PENTOBARBITAL [Suspect]
     Active Substance: PENTOBARBITAL
     Dosage: 1.5 MILLIGRAM/KILOGRAM, QH
     Route: 042
  9. LEVETIRACETAM [Suspect]
     Active Substance: LEVETIRACETAM
     Indication: Status epilepticus
     Dosage: 60 MILLIGRAM/KILOGRAM; 0.5 DAY
     Route: 042
  10. LEVETIRACETAM [Suspect]
     Active Substance: LEVETIRACETAM
     Dosage: 30 MILLIGRAM/KILOGRAM, BID
     Route: 042
  11. KETAMINE [Suspect]
     Active Substance: KETAMINE
     Indication: Status epilepticus
     Dosage: 1 MILLIGRAM/KILOGRAM OVER 2 TO 3 MINUTES
     Route: 042
  12. KETAMINE [Suspect]
     Active Substance: KETAMINE
     Dosage: 1 MILLIGRAM/KILOGRAM, QH TO 2 MG/KG/HR
     Route: 042

REACTIONS (1)
  - Drug ineffective for unapproved indication [Fatal]
